FAERS Safety Report 9466834 (Version 3)
Quarter: 2013Q3

REPORT INFORMATION
  Report Type: Spontaneous
  Country: TW (occurrence: TW)
  Receive Date: 20130820
  Receipt Date: 20130826
  Transmission Date: 20140515
  Serious: Yes (Death)
  Sender: FDA-Public Use
  Company Number: TW-PFIZER INC-2013236250

PATIENT
  Age: 72 Year
  Sex: Male

DRUGS (1)
  1. SUTENT [Suspect]
     Indication: GASTRIC CANCER
     Dosage: 25 MG, 1X/DAY
     Route: 048
     Dates: end: 20120618

REACTIONS (3)
  - Multi-organ failure [Fatal]
  - Disease progression [Unknown]
  - Gastric cancer [Unknown]
